FAERS Safety Report 22073293 (Version 1)
Quarter: 2023Q1

REPORT INFORMATION
  Report Type: Report from Study
  Country: ES (occurrence: ES)
  Receive Date: 20230308
  Receipt Date: 20230308
  Transmission Date: 20230418
  Serious: Yes (Hospitalization, Other)
  Sender: FDA-Public Use
  Company Number: ES-ABBVIE-4331583

PATIENT
  Sex: Female
  Weight: 55 kg

DRUGS (2)
  1. CARBIDOPA\LEVODOPA [Suspect]
     Active Substance: CARBIDOPA\LEVODOPA
     Indication: Parkinson^s disease
     Route: 050
     Dates: start: 20171117
  2. CARBIDOPA\LEVODOPA [Suspect]
     Active Substance: CARBIDOPA\LEVODOPA

REACTIONS (9)
  - Non-obstructive cardiomyopathy [Unknown]
  - Fatigue [Unknown]
  - CHA2DS2-VASc annual stroke risk high [Unknown]
  - Right ventricular dysfunction [Unknown]
  - Atrial flutter [Unknown]
  - Left ventricular dysfunction [Unknown]
  - Hypokinesia [Unknown]
  - Mitral valve incompetence [Unknown]
  - Tachycardia [Unknown]
